FAERS Safety Report 25142320 (Version 1)
Quarter: 2025Q1

REPORT INFORMATION
  Report Type: Spontaneous
  Country: US (occurrence: US)
  Receive Date: 20250331
  Receipt Date: 20250331
  Transmission Date: 20250409
  Serious: Yes (Other)
  Sender: Consumer Product Partners
  Company Number: US-Consumer Product Partners, LLC-2173984

PATIENT
  Sex: Female

DRUGS (1)
  1. CITROMA MAGNESIUM CITRATE [Suspect]
     Active Substance: MAGNESIUM CITRATE
     Dates: start: 20220712

REACTIONS (1)
  - Cholecystectomy [Recovered/Resolved]
